FAERS Safety Report 9611379 (Version 2)
Quarter: 2013Q4

REPORT INFORMATION
  Report Type: Spontaneous
  Country: US (occurrence: US)
  Receive Date: 20131010
  Receipt Date: 20131126
  Transmission Date: 20140711
  Serious: No
  Sender: FDA-Public Use
  Company Number: US-BIOGENIDEC-2013BI096483

PATIENT
  Age: 54 Year
  Sex: Female

DRUGS (4)
  1. TYSABRI [Suspect]
     Indication: MULTIPLE SCLEROSIS
     Route: 042
     Dates: start: 20130121
  2. CYCLOBENZAPRINE [Concomitant]
     Route: 048
  3. GABAPENTIN [Concomitant]
  4. ZYRTEC [Concomitant]
     Route: 048

REACTIONS (8)
  - Pain [Unknown]
  - Plantar fasciitis [Unknown]
  - Road traffic accident [Recovered/Resolved]
  - Fatigue [Unknown]
  - Urticaria [Unknown]
  - Drug specific antibody present [Unknown]
  - Asthenia [Not Recovered/Not Resolved]
  - Drug ineffective [Not Recovered/Not Resolved]
